FAERS Safety Report 4560659-5 (Version None)
Quarter: 2005Q1

REPORT INFORMATION
  Report Type: 
  Country: None (occurrence: None)
  Receive Date: 20050121
  Receipt Date: 20050105
  Transmission Date: 20050727
  Serious: Yes (Hospitalization)
  Sender: FDA-Public Use
  Company Number: DSA_25600_2005

PATIENT
  Age: 76 Year
  Sex: Male

DRUGS (10)
  1. ENALAPRIL MALEATE [Suspect]
     Indication: STENT PLACEMENT
     Dosage: 5 MG BID PO
     Route: 048
     Dates: start: 20030101, end: 20041117
  2. ENALAPRIL MALEATE [Suspect]
     Indication: STENT PLACEMENT
     Dosage: 5 MG Q DAY PO
     Route: 048
     Dates: start: 20041118, end: 20041216
  3. ENALAPRIL MALEATE [Suspect]
     Indication: STENT PLACEMENT
     Dosage: 5 MG BID PO
     Route: 048
     Dates: start: 20041217, end: 20050102
  4. ENALAPRIL MALEATE [Suspect]
     Indication: STENT PLACEMENT
     Dosage: 5 MG Q DAY PO
     Route: 048
     Dates: start: 20050103
  5. ADIRO [Concomitant]
  6. ATORVASTATIN CALCIUM [Concomitant]
  7. CARVEDILOL [Concomitant]
  8. DIAFUSOR [Concomitant]
  9. PANTOPRAZOLE [Concomitant]
  10. TRIMETAZIDINE HYDROCHLORIDE [Concomitant]

REACTIONS (4)
  - ABNORMAL BEHAVIOUR [None]
  - DIARRHOEA [None]
  - INTRACRANIAL HAEMATOMA [None]
  - URTICARIA [None]
